FAERS Safety Report 25569885 (Version 3)
Quarter: 2025Q4

REPORT INFORMATION
  Report Type: Spontaneous
  Country: AR (occurrence: AR)
  Receive Date: 20250717
  Receipt Date: 20251030
  Transmission Date: 20260118
  Serious: Yes (Hospitalization, Other)
  Sender: SANDOZ
  Company Number: AR-002147023-NVSC2025AR080494

PATIENT
  Sex: Female

DRUGS (7)
  1. FULVESTRANT [Suspect]
     Active Substance: FULVESTRANT
     Dosage: 2.5 MG, QD
     Route: 048
     Dates: start: 20241111
  2. FULVESTRANT [Suspect]
     Active Substance: FULVESTRANT
     Indication: Breast cancer metastatic
     Dosage: UNK, QMO
     Route: 065
     Dates: start: 20241107
  3. KISQALI [Suspect]
     Active Substance: RIBOCICLIB SUCCINATE
     Dosage: 2 (400 MG), QD/ ONCE A DAY
     Route: 048
  4. KISQALI [Suspect]
     Active Substance: RIBOCICLIB SUCCINATE
     Dosage: 400 MG, QD
     Route: 048
  5. KISQALI [Suspect]
     Active Substance: RIBOCICLIB SUCCINATE
     Indication: Breast cancer metastatic
     Dosage: 600 MG, QD (3 TABLET)
     Route: 048
     Dates: start: 20241107
  6. KISQALI [Suspect]
     Active Substance: RIBOCICLIB SUCCINATE
     Dosage: 2 DOSAGE FORM, QD
     Route: 065
  7. PAMIDRONATE [Concomitant]
     Active Substance: PAMIDRONATE DISODIUM
     Indication: Breast cancer metastatic
     Dosage: UNK
     Route: 065
     Dates: start: 20241107

REACTIONS (10)
  - Hypertension [Unknown]
  - Anaemia [Unknown]
  - Muscular weakness [Unknown]
  - Hypotension [Unknown]
  - Eating disorder [Unknown]
  - Pain in extremity [Unknown]
  - Bone disorder [Unknown]
  - Feeling abnormal [Unknown]
  - Globulins decreased [Unknown]
  - Product use issue [Unknown]
